FAERS Safety Report 24259071 (Version 1)
Quarter: 2024Q3

REPORT INFORMATION
  Report Type: Spontaneous
  Country: US (occurrence: US)
  Receive Date: 20240828
  Receipt Date: 20240828
  Transmission Date: 20241017
  Serious: Yes (Hospitalization, Other)
  Sender: BRISTOL MYERS SQUIBB
  Company Number: US-BRISTOL-MYERS SQUIBB COMPANY-2024-132148

PATIENT
  Age: 74 Year
  Sex: Male

DRUGS (1)
  1. LENALIDOMIDE [Suspect]
     Active Substance: LENALIDOMIDE
     Indication: Plasma cell myeloma
     Dosage: TAKE 1 CAPSULE WHOLE BY MOUTH WITH WATER, W/ OR W/O FOOD, AT SAME TIME EVERY DAY FOR 21 DAYS OF A 28
     Route: 048

REACTIONS (13)
  - Fatigue [Unknown]
  - Decreased appetite [Unknown]
  - Weight decreased [Unknown]
  - Diabetes mellitus [Unknown]
  - Constipation [Unknown]
  - Sinusitis [Unknown]
  - Oropharyngeal pain [Unknown]
  - COVID-19 [Unknown]
  - Cataract [Unknown]
  - Peripheral swelling [Unknown]
  - Pain [Unknown]
  - Somnolence [Unknown]
  - Full blood count abnormal [Recovering/Resolving]
